FAERS Safety Report 7824578-0 (Version None)
Quarter: 2011Q4

REPORT INFORMATION
  Report Type: 
  Country: None (occurrence: None)
  Receive Date: 20111019
  Receipt Date: 20111006
  Transmission Date: 20120403
  Serious: Yes (Other)
  Sender: FDA-Public Use
  Company Number: DE-ELI_LILLY_AND_COMPANY-DE201110001837

PATIENT
  Sex: Male
  Weight: 90 kg

DRUGS (5)
  1. STRATTERA [Suspect]
     Dosage: 40 MG, UNKNOWN
     Route: 048
  2. STRATTERA [Suspect]
     Dosage: 80 MG, UNKNOWN
     Route: 048
  3. STRATTERA [Suspect]
     Dosage: 25 MG, UNKNOWN
     Route: 048
     Dates: start: 20050501
  4. STRATTERA [Suspect]
     Dosage: 10 MG, UNKNOWN
     Route: 048
     Dates: start: 20060101
  5. STRATTERA [Suspect]
     Dosage: 60 MG, UNKNOWN
     Route: 048

REACTIONS (3)
  - DISTURBANCE IN ATTENTION [None]
  - WEIGHT INCREASED [None]
  - APPENDICITIS [None]
